FAERS Safety Report 7733574-3 (Version None)
Quarter: 2011Q3

REPORT INFORMATION
  Report Type: 
  Country: None (occurrence: None)
  Receive Date: 20110907
  Receipt Date: 20110825
  Transmission Date: 20111222
  Serious: No
  Sender: FDA-Public Use
  Company Number: CA-ELI_LILLY_AND_COMPANY-CA201108007708

PATIENT
  Sex: Male

DRUGS (2)
  1. ZYPREXA ZYDIS [Suspect]
     Dosage: 10 MG, UNKNOWN
  2. ZYPREXA ZYDIS [Suspect]
     Dosage: 5 MG, UNKNOWN

REACTIONS (4)
  - WHITE BLOOD CELL COUNT INCREASED [None]
  - TYPE 2 DIABETES MELLITUS [None]
  - FATIGUE [None]
  - HYPERGLYCAEMIA [None]
